FAERS Safety Report 24378975 (Version 1)
Quarter: 2024Q3

REPORT INFORMATION
  Report Type: Report from Study
  Country: PK (occurrence: PK)
  Receive Date: 20240930
  Receipt Date: 20240930
  Transmission Date: 20241017
  Serious: Yes (Death)
  Sender: ROCHE
  Company Number: PK-ROCHE-10000091141

PATIENT
  Age: 53 Year
  Sex: Female

DRUGS (1)
  1. PERJETA [Suspect]
     Active Substance: PERTUZUMAB
     Indication: Breast cancer metastatic
     Route: 042
     Dates: start: 20231207

REACTIONS (1)
  - Neoplasm malignant [Fatal]
